FAERS Safety Report 4490965-4 (Version None)
Quarter: 2004Q4

REPORT INFORMATION
  Report Type: 
  Country: None (occurrence: None)
  Receive Date: 20041027
  Receipt Date: 20041011
  Transmission Date: 20050328
  Serious: Yes (Death)
  Sender: FDA-Public Use
  Company Number: L04-SWE-06630-34

PATIENT
  Age: 65 Year
  Sex: Female

DRUGS (8)
  1. CITALOPRAM [Suspect]
  2. ALIMEMAZINE [Concomitant]
  3. DESMETHYLALIMEMZINE [Concomitant]
  4. PROPOXYPHENE [Concomitant]
  5. ACETAMINOPHEN [Concomitant]
  6. DIAZEPAM [Concomitant]
  7. NORDIAZEPAM [Concomitant]
  8. 7-AMINO-NITRAZEPAM (NITRAZELAM) [Concomitant]

REACTIONS (2)
  - DRUG SCREEN POSITIVE [None]
  - THERAPEUTIC AGENT TOXICITY [None]
